FAERS Safety Report 15936367 (Version 2)
Quarter: 2025Q1

REPORT INFORMATION
  Report Type: Spontaneous
  Country: US (occurrence: US)
  Receive Date: 20190208
  Receipt Date: 20250328
  Transmission Date: 20250409
  Serious: No
  Sender: ALEXION PHARMACEUTICALS
  Company Number: 2019SE06642

PATIENT
  Age: 63 Year

DRUGS (1)
  1. SYMBICORT [Suspect]
     Active Substance: BUDESONIDE\FORMOTEROL FUMARATE DIHYDRATE
     Dosage: 80/4.5MCG, 2 PUFFS TWICE DAILY

REACTIONS (3)
  - Sensation of foreign body [Unknown]
  - Intentional product misuse [Unknown]
  - Device breakage [Unknown]
